FAERS Safety Report 18585515 (Version 1)
Quarter: 2020Q4

REPORT INFORMATION
  Report Type: Spontaneous
  Country: US (occurrence: US)
  Receive Date: 20201203
  Receipt Date: 20201203
  Transmission Date: 20210114
  Serious: Yes (Hospitalization)
  Sender: FDA-Public Use
  Company Number: None

PATIENT
  Sex: Male

DRUGS (8)
  1. ALLOPURINOL. [Suspect]
     Active Substance: ALLOPURINOL
  2. FISH OIL [Suspect]
     Active Substance: FISH OIL
  3. MULTIVIT [Concomitant]
     Active Substance: VITAMINS
  4. VYNDAQEL [Suspect]
     Active Substance: TAFAMIDIS MEGLUMINE
     Indication: AMYLOIDOSIS
     Route: 048
     Dates: start: 20200720
  5. ATORVASTATIN [Suspect]
     Active Substance: ATORVASTATIN
  6. MELOXICAM. [Suspect]
     Active Substance: MELOXICAM
  7. LOSARTAN. [Suspect]
     Active Substance: LOSARTAN
  8. GLUCOSAMINE [Suspect]
     Active Substance: GLUCOSAMINE

REACTIONS (3)
  - Product dose omission issue [None]
  - COVID-19 [None]
  - Unevaluable event [None]
